FAERS Safety Report 9162183 (Version 2)
Quarter: 2013Q2

REPORT INFORMATION
  Report Type: Spontaneous
  Country: GB (occurrence: None)
  Receive Date: 20130220
  Receipt Date: 20130416
  Transmission Date: 20140414
  Serious: Yes (Disabling, Other)
  Sender: FDA-Public Use
  Company Number: GER/UKI/13/0028065

PATIENT
  Age: 71 Year
  Sex: Male

DRUGS (2)
  1. AMLODIPINE [Suspect]
     Indication: PRODUCT USED FOR UNKNOWN INDICATION
     Dosage: 5 MG, 1 IN 1 D
     Dates: start: 20130115
  2. SIMVASTATIN (SIMVASTATIN) [Concomitant]

REACTIONS (4)
  - Constipation [None]
  - Abnormal faeces [None]
  - Local swelling [None]
  - Joint swelling [None]
